FAERS Safety Report 21229472 (Version 1)
Quarter: 2022Q3

REPORT INFORMATION
  Report Type: Spontaneous
  Country: US (occurrence: US)
  Receive Date: 20220818
  Receipt Date: 20220818
  Transmission Date: 20221026
  Serious: No
  Sender: FDA-Public Use
  Company Number: US-BRISTOL-MYERS SQUIBB COMPANY-2022-092036

PATIENT
  Age: 74 Year
  Sex: Female
  Weight: 67.59 kg

DRUGS (7)
  1. REVLIMID [Suspect]
     Active Substance: LENALIDOMIDE
     Indication: Myelodysplastic syndrome
     Dosage: FREQUENCY : ONCE DAILY FOR 21 DAYS AND 7 DAYS OFF
     Route: 048
     Dates: start: 20220520
  2. LEVOTHYROXINE [Concomitant]
     Active Substance: LEVOTHYROXINE
     Indication: Product used for unknown indication
     Route: 065
  3. LOVASTATIN [Concomitant]
     Active Substance: LOVASTATIN
     Indication: Product used for unknown indication
     Route: 065
  4. FLAXSEED [Concomitant]
     Active Substance: FLAX SEED
     Indication: Product used for unknown indication
     Route: 065
  5. METHOCARBAMOL [Concomitant]
     Active Substance: METHOCARBAMOL
     Indication: Product used for unknown indication
     Route: 065
  6. PRILOSEC [Concomitant]
     Active Substance: OMEPRAZOLE MAGNESIUM
     Indication: Product used for unknown indication
     Route: 065
  7. VITAMIN D [Concomitant]
     Active Substance: VITAMIN D NOS
     Indication: Product used for unknown indication
     Route: 065

REACTIONS (2)
  - Rash [Unknown]
  - Off label use [Unknown]
